FAERS Safety Report 7111527-6 (Version None)
Quarter: 2010Q4

REPORT INFORMATION
  Report Type: 
  Country: None (occurrence: None)
  Receive Date: 20101118
  Receipt Date: 20101108
  Transmission Date: 20110411
  Serious: Yes (Hospitalization, Other)
  Sender: FDA-Public Use
  Company Number: US-ROCHE-720574

PATIENT
  Sex: Male
  Weight: 68 kg

DRUGS (1)
  1. ACCUTANE [Suspect]
     Indication: ACNE
     Route: 065
     Dates: start: 19940801, end: 19950201

REACTIONS (9)
  - ABDOMINAL PAIN [None]
  - COLITIS ULCERATIVE [None]
  - CROHN'S DISEASE [None]
  - HAEMORRHOIDS [None]
  - INFLAMMATORY BOWEL DISEASE [None]
  - INTESTINAL OBSTRUCTION [None]
  - LARGE INTESTINAL ULCER [None]
  - NAUSEA [None]
  - RECTAL HAEMORRHAGE [None]
